FAERS Safety Report 5774698-X (Version None)
Quarter: 2008Q2

REPORT INFORMATION
  Report Type: 
  Country: None (occurrence: None)
  Receive Date: 20080616
  Receipt Date: 20080616
  Transmission Date: 20081010
  Serious: Yes (Life-Threatening, Hospitalization)
  Sender: FDA-Public Use
  Company Number: None

PATIENT
  Age: 46 Year
  Sex: Female
  Weight: 57.1532 kg

DRUGS (13)
  1. PREGABALIN [Suspect]
     Indication: NEURALGIA
     Dosage: BID-TID
     Dates: start: 20080424, end: 20080430
  2. PROGRAF [Concomitant]
  3. CELLCEPT [Concomitant]
  4. PREDNISONE [Concomitant]
  5. CYMBALTA [Concomitant]
  6. SEROQUEL [Concomitant]
  7. NEXIUM [Concomitant]
  8. ATENOLOL [Concomitant]
  9. PRAVASTATIN [Concomitant]
  10. MAGNESIUM [Concomitant]
  11. VIT D3 [Concomitant]
  12. CALCIUM [Concomitant]
  13. FISH OIL [Concomitant]

REACTIONS (2)
  - NEUROLEPTIC MALIGNANT SYNDROME [None]
  - RHABDOMYOLYSIS [None]
